FAERS Safety Report 8309905-2 (Version None)
Quarter: 2012Q2

REPORT INFORMATION
  Report Type: 
  Country: None (occurrence: None)
  Receive Date: 20120425
  Receipt Date: 20120423
  Transmission Date: 20120825
  Serious: Yes (Other)
  Sender: FDA-Public Use
  Company Number: SE-PFIZER INC-2012099151

PATIENT
  Age: 47 Year
  Sex: Female

DRUGS (2)
  1. VARENICLINE TARTRATE [Suspect]
     Dosage: UNK
     Dates: start: 20110113, end: 20110128
  2. VARENICLINE TARTRATE [Suspect]
     Dosage: UNK
     Dates: start: 20110129, end: 20110131

REACTIONS (2)
  - EPISTAXIS [None]
  - HAEMATOCHEZIA [None]
